FAERS Safety Report 4535935-2 (Version None)
Quarter: 2004Q4

REPORT INFORMATION
  Report Type: 
  Country: None (occurrence: None)
  Receive Date: 20041220
  Receipt Date: 20041207
  Transmission Date: 20050328
  Serious: Yes (Hospitalization)
  Sender: FDA-Public Use
  Company Number: 2004111456

PATIENT
  Age: 27 Year
  Sex: Female
  Weight: 78.9259 kg

DRUGS (1)
  1. DEPO-PROVERA [Suspect]
     Indication: CONTRACEPTION
     Dosage: 150 MG (150 MG, 1ST INJECTION EVERY 3 MONTHS), INTRAMUSCULAR
     Route: 030
     Dates: start: 20000812, end: 20000812

REACTIONS (1)
  - PAIN [None]
